FAERS Safety Report 8047602-1 (Version None)
Quarter: 2012Q1

REPORT INFORMATION
  Report Type: 
  Country: None (occurrence: None)
  Receive Date: 20120116
  Receipt Date: 20120113
  Transmission Date: 20120608
  Serious: Yes (Death)
  Sender: FDA-Public Use
  Company Number: PE-GLAXOSMITHKLINE-A0961470A

PATIENT
  Sex: Female

DRUGS (2)
  1. FLUTICASONE PROPIONATE/SALMETEROL [Suspect]
     Indication: ASTHMA
     Dosage: 4PUFF PER DAY
     Route: 055
     Dates: start: 20111115
  2. UNKNOWN [Concomitant]

REACTIONS (1)
  - BRAIN NEOPLASM [None]
